FAERS Safety Report 12986907 (Version 3)
Quarter: 2019Q1

REPORT INFORMATION
  Report Type: Spontaneous
  Country: US (occurrence: US)
  Receive Date: 20161130
  Receipt Date: 20190131
  Transmission Date: 20190417
  Serious: No
  Sender: FDA-Public Use
  Company Number: US-PFIZER INC-2016543170

PATIENT
  Age: 45 Year
  Sex: Female

DRUGS (1)
  1. PROTONIX [Suspect]
     Active Substance: PANTOPRAZOLE SODIUM
     Dosage: UNK

REACTIONS (5)
  - Urticaria [Unknown]
  - Drug hypersensitivity [Not Recovered/Not Resolved]
  - Rash [Unknown]
  - Wheezing [Unknown]
  - Anaemia [Unknown]

NARRATIVE: CASE EVENT DATE: 20090630
